FAERS Safety Report 16297515 (Version 2)
Quarter: 2019Q2

REPORT INFORMATION
  Report Type: Report from Study
  Country: DE (occurrence: DE)
  Receive Date: 20190510
  Receipt Date: 20190531
  Transmission Date: 20190711
  Serious: Yes (Other)
  Sender: FDA-Public Use
  Company Number: PHHY2015DE122008

PATIENT
  Age: 49 Year
  Sex: Female

DRUGS (2)
  1. GILENYA [Suspect]
     Active Substance: FINGOLIMOD HYDROCHLORIDE
     Indication: MULTIPLE SCLEROSIS
     Dosage: UNK, QD
     Route: 048
     Dates: start: 20140528, end: 20160126
  2. GILENYA [Suspect]
     Active Substance: FINGOLIMOD HYDROCHLORIDE
     Dosage: UNK, QD
     Route: 048
     Dates: start: 20160127

REACTIONS (15)
  - Gamma-glutamyltransferase increased [Unknown]
  - Blood cholesterol increased [Unknown]
  - Blood bilirubin increased [Unknown]
  - Arthralgia [Unknown]
  - Arrhythmia [Unknown]
  - Insomnia [Unknown]
  - Muscle spasms [Unknown]
  - Sjogren^s syndrome [Unknown]
  - Low density lipoprotein increased [Unknown]
  - Poor quality sleep [Unknown]
  - Lymphopenia [Not Recovered/Not Resolved]
  - Blood alkaline phosphatase decreased [Unknown]
  - White blood cell count decreased [Unknown]
  - Psoriasis [Unknown]
  - High density lipoprotein increased [Unknown]

NARRATIVE: CASE EVENT DATE: 20150123
